FAERS Safety Report 7211653-7 (Version None)
Quarter: 2011Q1

REPORT INFORMATION
  Report Type: 
  Country: None (occurrence: None)
  Receive Date: 20110105
  Receipt Date: 20101223
  Transmission Date: 20110831
  Serious: Yes (Hospitalization)
  Sender: FDA-Public Use
  Company Number: BE-MYLANLABS-2010S1023774

PATIENT
  Age: 57 Year
  Sex: Male

DRUGS (4)
  1. CLARITHROMYCIN [Suspect]
     Indication: RHODOCOCCUS INFECTION
     Route: 048
     Dates: start: 20061105, end: 20070303
  2. RIFAMPICIN [Concomitant]
     Indication: RHODOCOCCUS INFECTION
     Route: 065
     Dates: start: 20061115, end: 20070418
  3. LEVOFLOXACIN [Concomitant]
     Indication: RHODOCOCCUS INFECTION
     Route: 065
     Dates: start: 20061126, end: 20070418
  4. LINEZOLID [Suspect]
     Indication: RHODOCOCCUS INFECTION
     Route: 065
     Dates: start: 20070124, end: 20070319

REACTIONS (2)
  - GASTROINTESTINAL TOXICITY [None]
  - NEUROPATHY PERIPHERAL [None]
